FAERS Safety Report 16480846 (Version 1)
Quarter: 2019Q2

REPORT INFORMATION
  Report Type: Spontaneous
  Country: US (occurrence: US)
  Receive Date: 20190626
  Receipt Date: 20190626
  Transmission Date: 20190711
  Serious: No
  Sender: FDA-Public Use
  Company Number: US-GALDERMA-US19016525

PATIENT
  Age: 14 Year
  Sex: Male

DRUGS (6)
  1. PROACTIV GREEN TEA MOISTURIZER [Concomitant]
     Active Substance: COSMETICS
     Indication: ACNE
     Route: 061
     Dates: start: 20190225, end: 20190301
  2. PROACTIV MD DAILY OIL CONTROL SPF 30 [Suspect]
     Active Substance: AVOBENZONE\OCTISALATE\OCTOCRYLENE
     Indication: ACNE
     Route: 061
     Dates: start: 20190225, end: 20190301
  3. PROACTIV DETOX HYDROGEL FACE MASK [Concomitant]
     Indication: ACNE
     Route: 061
     Dates: start: 20190225, end: 20190301
  4. PROACTIV MD DEEP CLEANSING FACE WASH [Concomitant]
     Active Substance: COSMETICS
     Indication: ACNE
     Route: 061
     Dates: start: 20190225, end: 20190301
  5. VITAMINS [Concomitant]
     Active Substance: VITAMINS
  6. PROACTIV MD ADAPALENE ACNE TREATMENT [Suspect]
     Active Substance: ADAPALENE
     Indication: ACNE
     Dosage: 0.1%
     Route: 061
     Dates: start: 20190225, end: 20190301

REACTIONS (3)
  - Acne [Recovering/Resolving]
  - Erythema [Recovering/Resolving]
  - Pain of skin [Recovering/Resolving]

NARRATIVE: CASE EVENT DATE: 20190226
